FAERS Safety Report 10944218 (Version 1)
Quarter: 2015Q1

REPORT INFORMATION
  Report Type: Spontaneous
  Country: IT (occurrence: IT)
  Receive Date: 20150323
  Receipt Date: 20150323
  Transmission Date: 20150721
  Serious: Yes (Other)
  Sender: FDA-Public Use
  Company Number: IT-ACCORD-029421

PATIENT
  Age: 43 Year
  Sex: Male

DRUGS (3)
  1. ERBITUX [Concomitant]
     Active Substance: CETUXIMAB
     Indication: SALIVARY GLAND NEOPLASM
     Dosage: STRENGTH: 5 MG/ML
     Dates: start: 20140501, end: 20141231
  2. CISPLATIN SANDOZ [Suspect]
     Active Substance: CISPLATIN
     Indication: SALIVARY GLAND NEOPLASM
     Dosage: STRENGTH: 1 MG/ML
  3. FLUOROURACIL ACCORD [Suspect]
     Active Substance: FLUOROURACIL
     Indication: SALIVARY GLAND NEOPLASM
     Dosage: STRENGTH: 50 MG/ML

REACTIONS (2)
  - Off label use [Unknown]
  - Paraesthesia [Not Recovered/Not Resolved]

NARRATIVE: CASE EVENT DATE: 20140923
